FAERS Safety Report 14871035 (Version 1)
Quarter: 2018Q2

REPORT INFORMATION
  Report Type: Spontaneous
  Country: JP (occurrence: JP)
  Receive Date: 20180509
  Receipt Date: 20180509
  Transmission Date: 20180711
  Serious: Yes (Other)
  Sender: FDA-Public Use
  Company Number: JP-GLAXOSMITHKLINE-JP2018GSK081830

PATIENT
  Age: 57 Year
  Sex: Male

DRUGS (1)
  1. LAMIVUDINE. [Suspect]
     Active Substance: LAMIVUDINE
     Indication: HEPATITIS B
     Dosage: 100 MG, QD

REACTIONS (5)
  - Condition aggravated [Unknown]
  - Hepatitis [Unknown]
  - Drug ineffective [Unknown]
  - Nephrotic syndrome [Unknown]
  - Proteinuria [Unknown]
